FAERS Safety Report 6169404-3 (Version None)
Quarter: 2009Q2

REPORT INFORMATION
  Report Type: 
  Country: None (occurrence: None)
  Receive Date: 20090424
  Receipt Date: 20090414
  Transmission Date: 20091009
  Serious: Yes (Hospitalization)
  Sender: FDA-Public Use
  Company Number: 2009SP008255

PATIENT
  Age: 46 Year

DRUGS (1)
  1. CELESTONE SOLUSPAN [Suspect]
     Indication: EPICONDYLITIS

REACTIONS (2)
  - NECROTISING FASCIITIS [None]
  - STREPTOCOCCAL INFECTION [None]
